FAERS Safety Report 6695378-2 (Version None)
Quarter: 2010Q2

REPORT INFORMATION
  Report Type: 
  Country: None (occurrence: None)
  Receive Date: 20100423
  Receipt Date: 20100423
  Transmission Date: 20101027
  Serious: Yes (Other)
  Sender: FDA-Public Use
  Company Number: None

PATIENT
  Sex: Female

DRUGS (2)
  1. METOPROLOL SUCCINATE EXTENDED RELEASE [Suspect]
     Indication: HYPERTENSION
     Dosage: 25MG ONE QD PO
     Route: 048
     Dates: start: 20081106, end: 20090310
  2. METOPROLOL SUCCINATE EXTENDED RELEASE [Suspect]
     Indication: PALPITATIONS
     Dosage: 25MG ONE QD PO
     Route: 048
     Dates: start: 20081106, end: 20090310

REACTIONS (2)
  - BLOOD PRESSURE INADEQUATELY CONTROLLED [None]
  - PALPITATIONS [None]
